FAERS Safety Report 11032959 (Version 1)
Quarter: 2015Q2

REPORT INFORMATION
  Report Type: Other
  Country: GB (occurrence: GB)
  Receive Date: 20150415
  Receipt Date: 20150415
  Transmission Date: 20150821
  Serious: Yes (Other)
  Sender: FDA-Public Use
  Company Number: GB-MYLANLABS-2015M1010861

PATIENT

DRUGS (34)
  1. ASPIRIN                            /00002701/ [Concomitant]
     Active Substance: ASPIRIN
     Dosage: 1 DF, QD
     Dates: start: 20140904
  2. BISACODYL. [Concomitant]
     Active Substance: BISACODYL
     Indication: CONSTIPATION
     Dosage: 1 DF, UNK (TAKE 1 OR 2 AT NIGHT)
     Dates: start: 20140904
  3. LANSOPRAZOLE. [Concomitant]
     Active Substance: LANSOPRAZOLE
     Dosage: 1 DF, UNK (ONCE OR TWICE)
     Dates: start: 20140904
  4. MOXONIDINE [Concomitant]
     Active Substance: MOXONIDINE
     Dosage: 1 DF, QD (IN THE MORNING)
     Dates: start: 20140904
  5. NASEPTIN [Concomitant]
     Active Substance: CHLORHEXIDINE HYDROCHLORIDE\NEOMYCIN SULFATE
     Dosage: APPLY AS DIRECTED
     Dates: start: 20150114, end: 20150211
  6. REFRESH OPTIVE [Concomitant]
     Active Substance: CARBOXYMETHYLCELLULOSE SODIUM\GLYCERIN
     Dosage: USE AS DIRECTED.  DISCARD SIX MONTHS AFTER OPENING
     Dates: start: 20140904
  7. PARACETAMOL [Concomitant]
     Active Substance: ACETAMINOPHEN
     Dosage: TAKE 1 OR 2 4
     Dates: start: 20150312, end: 20150322
  8. TIOTROPIUM [Concomitant]
     Active Substance: TIOTROPIUM
     Dosage: 1 DF, QD
     Route: 055
     Dates: start: 20140904
  9. OILATUM [Concomitant]
     Dosage: UNK
     Dates: start: 20140904
  10. PERINDOPRIL ERBUMINE. [Concomitant]
     Active Substance: PERINDOPRIL ERBUMINE
     Dosage: 1 DF, QD (AT 6PM)
     Dates: start: 20140904
  11. QUININE [Concomitant]
     Active Substance: QUININE
     Dosage: USE AS DIRECTED
     Dates: start: 20140904
  12. ALLOPURINOL. [Concomitant]
     Active Substance: ALLOPURINOL
     Dosage: 1 DF, QD
     Dates: start: 20140904
  13. ATORVASTATIN [Concomitant]
     Active Substance: ATORVASTATIN
     Dosage: 1 DF, QD
     Dates: start: 20140904
  14. CETIRIZINE [Concomitant]
     Active Substance: CETIRIZINE HYDROCHLORIDE
     Dosage: 1 DF, QD
     Dates: start: 20140904
  15. RECTOGESIC [Concomitant]
     Active Substance: NITROGLYCERIN
     Dosage: APPLY 2.5CM OF OINTMENT TO ANAL CANAL
     Dates: start: 20150129, end: 20150226
  16. AMITRIPTYLINE HYDROCHLORIDE. [Concomitant]
     Active Substance: AMITRIPTYLINE HYDROCHLORIDE
     Dosage: 1 DF, QD
     Dates: start: 20140904
  17. BISOPROLOL [Concomitant]
     Active Substance: BISOPROLOL
     Dosage: 1 DF, QD
     Dates: start: 20140904
  18. CLOPIDOGREL [Concomitant]
     Active Substance: CLOPIDOGREL BISULFATE
     Dosage: 1 DF, QD
     Dates: start: 20140904
  19. DIPROBASE [Concomitant]
     Active Substance: CHLOROCRESOL
     Dosage: 1 DF, TID
     Dates: start: 20140904, end: 20150203
  20. NYSTAN [Concomitant]
     Active Substance: NYSTATIN
     Dosage: 1 ML, QID
     Dates: start: 20150312, end: 20150319
  21. VENTOLIN [Concomitant]
     Active Substance: ALBUTEROL SULFATE
     Dosage: 2 DF, UNK
     Route: 055
     Dates: start: 20140904
  22. CORSODYL [Concomitant]
     Active Substance: CHLORHEXIDINE GLUCONATE
     Dosage: 1 DF, BID
     Dates: start: 20150319
  23. FUROSEMIDE. [Concomitant]
     Active Substance: FUROSEMIDE
     Dosage: 1 DF, BID (IN THE AFTERNOON)
     Dates: start: 20140904
  24. GLYCERYL TRINITRATE [Concomitant]
     Active Substance: NITROGLYCERIN
     Dosage: SPRAY ONE TO TWO DOSES UNDER THE TONGUE
     Dates: start: 20140904
  25. LACRI-LUBE [Concomitant]
     Dosage: USE AS DIRECTED AT NIGHT
     Dates: start: 20140904
  26. NICORANDIL [Concomitant]
     Active Substance: NICORANDIL
     Dosage: 1 DF, BID (SPECIAL CONTAINER)
     Dates: start: 20140904
  27. DERMOL [Concomitant]
     Active Substance: BENZALKONIUM CHLORIDE\CHLORHEXIDINE HYDROCHLORIDE\ISOPROPYL MYRISTATE\PARAFFIN
     Dosage: UNK, USE AS DIRECTED
     Dates: start: 20140904
  28. FERROUS FUMARATE [Concomitant]
     Active Substance: FERROUS FUMARATE
     Dosage: 1 DF, TID
     Dates: start: 20140904
  29. GLICLAZIDE [Concomitant]
     Active Substance: GLICLAZIDE
     Dosage: 1 DF, BID (WITH MEALS)
     Dates: start: 20140904
  30. METFORMIN [Concomitant]
     Active Substance: METFORMIN HYDROCHLORIDE
     Dosage: 2 DF, BID (WITH MEALS)
     Dates: start: 20140904
  31. IBUPROFEN. [Suspect]
     Active Substance: IBUPROFEN
     Dosage: UNK
     Dates: start: 20150324
  32. AMLODIPINE [Concomitant]
     Active Substance: AMLODIPINE BESYLATE
     Dosage: 1 DF, QD
     Dates: start: 20140904
  33. FOSTAIR [Concomitant]
     Active Substance: BECLOMETHASONE\FORMOTEROL
     Dosage: 1 DF, BID
     Dates: start: 20140904
  34. HYLO-FORTE [Concomitant]
     Dosage: APPLY AS DIRECTED. DISCARD 6 MONTHS AFTER OPENING
     Dates: start: 20140904

REACTIONS (2)
  - Malaise [Unknown]
  - Chronic kidney disease [Recovered/Resolved]

NARRATIVE: CASE EVENT DATE: 20150324
